FAERS Safety Report 13111507 (Version 1)
Quarter: 2017Q1

REPORT INFORMATION
  Report Type: Spontaneous
  Country: US (occurrence: US)
  Receive Date: 20170112
  Receipt Date: 20170112
  Transmission Date: 20170428
  Serious: Yes (Hospitalization, Other)
  Sender: FDA-Public Use
  Company Number: US-BRISTOL-MYERS SQUIBB COMPANY-BMS-2017-001813

PATIENT
  Sex: Female

DRUGS (1)
  1. SPRYCEL [Suspect]
     Active Substance: DASATINIB
     Indication: BRAIN NEOPLASM
     Dosage: 20 MG, QD
     Route: 048
     Dates: start: 20160907

REACTIONS (3)
  - Hospitalisation [Unknown]
  - Product used for unknown indication [Unknown]
  - Off label use [Unknown]
